FAERS Safety Report 8191284-5 (Version None)
Quarter: 2012Q1

REPORT INFORMATION
  Report Type: 
  Country: None (occurrence: None)
  Receive Date: 20120307
  Receipt Date: 20120229
  Transmission Date: 20120608
  Serious: Yes (Other)
  Sender: FDA-Public Use
  Company Number: PHHY2012BR005130

PATIENT
  Sex: Female

DRUGS (3)
  1. CLORAMIN [Suspect]
  2. ATENOLOL [Suspect]
  3. RASILEZ AMLO [Suspect]

REACTIONS (2)
  - OEDEMA PERIPHERAL [None]
  - BLOOD PRESSURE DECREASED [None]
